FAERS Safety Report 8730470 (Version 2)
Quarter: 2012Q4

REPORT INFORMATION
  Report Type: 
  Country: US (occurrence: US)
  Receive Date: 20120817
  Receipt Date: 20120902
  Transmission Date: 20130627
  Serious: Yes (Hospitalization, Other)
  Sender: FDA-Public Use
  Company Number: US-AMGEN-USASP2012050924

PATIENT
  Age: 76 Year
  Sex: Female
  Weight: 68.25 kg

DRUGS (15)
  1. PROLIA [Suspect]
     Indication: OSTEOPOROSIS POSTMENOPAUSAL
     Dosage: 60 mg, q6mo
     Route: 058
     Dates: start: 20120622
  2. EVISTA [Suspect]
     Indication: OSTEOPOROSIS
     Dosage: 60 mg, UNK
     Route: 048
     Dates: start: 2001, end: 201207
  3. ASPIRIN [Concomitant]
     Dosage: 81 mg, UNK
     Route: 048
  4. LIPITOR [Concomitant]
     Indication: HYPERLIPIDAEMIA
     Dosage: 80 mg, qhs
     Route: 048
     Dates: start: 20120601
  5. CALCIUM [Concomitant]
     Dosage: 600 mg, bid
     Route: 048
  6. LEVOTHYROXINE [Concomitant]
     Indication: HYPOTHYROIDISM
     Dosage: 75 mug, UNK
     Route: 048
     Dates: start: 20120319
  7. OMEPRAZOLE MAGNESIUM [Concomitant]
     Indication: GASTROOESOPHAGEAL REFLUX DISEASE
     Dosage: 20 mg, UNK
     Route: 048
  8. PROMETHAZINE [Concomitant]
     Indication: NAUSEA
     Dosage: 25 mg, prn
     Route: 048
     Dates: start: 20120622
  9. MEDROL                             /00049601/ [Concomitant]
     Dosage: 4 mg, UNK
     Route: 048
     Dates: start: 20120618
  10. TRAMADOL [Concomitant]
     Indication: PAIN
     Dosage: 50 mg, prn
     Route: 048
     Dates: start: 20120702
  11. VITAMIN D3 [Concomitant]
     Dosage: 200 mg, bid
     Route: 048
  12. MULTIVITAMINS [Concomitant]
     Dosage: UNK UNK, qd
     Route: 048
  13. ALEVE [Concomitant]
     Dosage: 220 mg, UNK
     Route: 048
  14. WARFARIN [Concomitant]
     Dosage: 5 mg, UNK
     Route: 048
  15. DOCUSATE SODIUM [Concomitant]
     Dosage: 100 mg, bid
     Route: 048

REACTIONS (5)
  - Deep vein thrombosis [Not Recovered/Not Resolved]
  - Vertebroplasty [Unknown]
  - Hyponatraemia [Recovered/Resolved]
  - Hypokalaemia [Recovered/Resolved]
  - Anaemia [Recovering/Resolving]
